FAERS Safety Report 24833114 (Version 1)
Quarter: 2025Q1

REPORT INFORMATION
  Report Type: Spontaneous
  Country: US (occurrence: US)
  Receive Date: 20250111
  Receipt Date: 20250111
  Transmission Date: 20250409
  Serious: No
  Sender: AMNEAL
  Company Number: US-AMNEAL PHARMACEUTICALS-2024-AMRX-03068

PATIENT
  Sex: Female

DRUGS (2)
  1. GUANFACINE [Suspect]
     Active Substance: GUANFACINE
     Indication: Product used for unknown indication
     Route: 065
     Dates: end: 20240622
  2. LEVOKETOCONAZOLE [Suspect]
     Active Substance: LEVOKETOCONAZOLE
     Indication: Pituitary-dependent Cushing^s syndrome
     Dosage: 1 TABLETS, 2X/DAY
     Route: 048
     Dates: start: 20240614

REACTIONS (7)
  - Back pain [Not Recovered/Not Resolved]
  - Dehydration [Unknown]
  - Haemorrhoidal haemorrhage [Not Recovered/Not Resolved]
  - Heart rate increased [Not Recovered/Not Resolved]
  - Abdominal pain [Unknown]
  - Abdominal pain upper [Unknown]
  - Nausea [Recovered/Resolved]
